FAERS Safety Report 4310013-6 (Version None)
Quarter: 2004Q1

REPORT INFORMATION
  Report Type: 
  Country: None (occurrence: None)
  Receive Date: 20040301
  Receipt Date: 20031105
  Transmission Date: 20041129
  Serious: No
  Sender: FDA-Public Use
  Company Number: WAES 0310USA02508

PATIENT
  Age: 76 Year
  Sex: Female

DRUGS (3)
  1. ZETIA [Suspect]
     Indication: HYPERCHOLESTEROLAEMIA
     Dosage: 10 MG/DAILY/PO
     Route: 048
     Dates: start: 20020101
  2. LESCOL [Concomitant]
  3. NORVASC [Concomitant]

REACTIONS (3)
  - HAEMORRHAGE [None]
  - INTRAOCULAR PRESSURE DECREASED [None]
  - OPTIC NERVE INJURY [None]
